FAERS Safety Report 11179673 (Version 1)
Quarter: 2015Q2

REPORT INFORMATION
  Report Type: Report from Study
  Country: IR (occurrence: IR)
  Receive Date: 20150611
  Receipt Date: 20150611
  Transmission Date: 20150821
  Serious: Yes (Death, Other)
  Sender: FDA-Public Use
  Company Number: IR-ROCHE-1590581

PATIENT
  Age: 68 Year
  Sex: Male

DRUGS (1)
  1. ALTEPLASE [Suspect]
     Active Substance: ALTEPLASE
     Indication: ISCHAEMIC STROKE
     Dosage: 10% BOLUS, 90% CONTINUOUS
     Route: 042

REACTIONS (5)
  - Coma [Fatal]
  - Brain oedema [Fatal]
  - Cerebral infarction [Fatal]
  - Cardiopulmonary failure [Fatal]
  - Quadriplegia [Unknown]
